FAERS Safety Report 10552331 (Version 1)
Quarter: 2014Q4

REPORT INFORMATION
  Report Type: Spontaneous
  Country: GB (occurrence: GB)
  Receive Date: 20141029
  Receipt Date: 20141029
  Transmission Date: 20150529
  Serious: Yes (Death)
  Sender: FDA-Public Use
  Company Number: GB-BANPHARM-20143170

PATIENT
  Age: 37 Year
  Sex: Male

DRUGS (4)
  1. COCAINE [Suspect]
     Active Substance: COCAINE
  2. DIAZEPAM. [Suspect]
     Active Substance: DIAZEPAM
  3. SUBUTEX [Suspect]
     Active Substance: BUPRENORPHINE HYDROCHLORIDE
  4. IBUPROFEN UNKNOWN PRODUCT [Suspect]
     Active Substance: IBUPROFEN

REACTIONS (3)
  - Substance abuse [Recovered/Resolved]
  - Toxicity to various agents [Fatal]
  - Cardiac disorder [Fatal]
